FAERS Safety Report 24215901 (Version 1)
Quarter: 2024Q3

REPORT INFORMATION
  Report Type: Spontaneous
  Country: FR (occurrence: FR)
  Receive Date: 20240816
  Receipt Date: 20240816
  Transmission Date: 20241016
  Serious: Yes (Hospitalization, Other)
  Sender: AUROBINDO
  Company Number: FR-AFSSAPS-RS2024000755

PATIENT
  Age: 65 Year
  Sex: Male
  Weight: 86.6 kg

DRUGS (1)
  1. AMOXICILLIN [Suspect]
     Active Substance: AMOXICILLIN
     Indication: Encephalitis
     Dosage: 9 GRAM, ONCE A DAY
     Route: 042
     Dates: start: 20240715, end: 20240719

REACTIONS (2)
  - Acute kidney injury [Not Recovered/Not Resolved]
  - Crystalluria [Not Recovered/Not Resolved]

NARRATIVE: CASE EVENT DATE: 20240719
